FAERS Safety Report 6586350-1 (Version None)
Quarter: 2010Q1

REPORT INFORMATION
  Report Type: 
  Country: None (occurrence: None)
  Receive Date: 20100216
  Receipt Date: 20100216
  Transmission Date: 20100710
  Serious: Yes (Other)
  Sender: FDA-Public Use
  Company Number: None

PATIENT
  Age: 71 Year
  Sex: Female
  Weight: 86.1834 kg

DRUGS (8)
  1. REMICADE [Suspect]
     Indication: RHEUMATOID ARTHRITIS
     Dosage: 700 MG EVERY 6 WEEKS IV
     Route: 042
     Dates: start: 20060625, end: 20090923
  2. AMLODIPINE [Concomitant]
  3. FOLIC ACID [Concomitant]
  4. HYDROXYCHLOROQUINE SULFATE [Concomitant]
  5. LISINOPRIL [Concomitant]
  6. LEVOTHYROXINE SODIUM [Concomitant]
  7. CALCIUM SUPPLEMENTS [Concomitant]
  8. MULTI-VITAMINS [Concomitant]

REACTIONS (6)
  - ANTINUCLEAR ANTIBODY POSITIVE [None]
  - DERMATITIS ALLERGIC [None]
  - DOUBLE STRANDED DNA ANTIBODY [None]
  - PHOTOSENSITIVITY REACTION [None]
  - PRURITUS [None]
  - SYSTEMIC LUPUS ERYTHEMATOSUS [None]
